FAERS Safety Report 23777213 (Version 4)
Quarter: 2024Q2

REPORT INFORMATION
  Report Type: Spontaneous
  Country: US (occurrence: US)
  Receive Date: 20240424
  Receipt Date: 20240624
  Transmission Date: 20240716
  Serious: Yes (Other)
  Sender: FDA-Public Use
  Company Number: US-BRISTOL-MYERS SQUIBB COMPANY-2024-063457

PATIENT
  Age: 78 Year
  Sex: Female

DRUGS (3)
  1. LENALIDOMIDE [Suspect]
     Active Substance: LENALIDOMIDE
     Indication: Plasma cell myeloma
     Dosage: TAKE 1 CAPSULE WHOLE BY MOUTH WITH WATER AT THE SAME TIME EACH DAY ON DAYS 1-14 OF EACH 28-DAY CYCLE
     Route: 048
  2. LENALIDOMIDE [Suspect]
     Active Substance: LENALIDOMIDE
     Dosage: TAKE 1 CAPSULE WHOLE BY MOUTH WITH WATER AT SAME TIME EVERY OTHER DAY ON DAYS 1-21 OF EACH 28 DAY CY
     Route: 048
  3. LENALIDOMIDE [Suspect]
     Active Substance: LENALIDOMIDE
     Dosage: TAKE 1 CAPSULE WHOLE BY MOUTH WITH WATER AT SAME TIME EVERY OTHER DAY ON DAYS 1-21 OF EACH 28 DAY CY
     Route: 048

REACTIONS (5)
  - Paraesthesia [Recovering/Resolving]
  - Renal impairment [Recovering/Resolving]
  - Off label use [Unknown]
  - Diarrhoea [Recovered/Resolved]
  - Pain in extremity [Not Recovered/Not Resolved]
